FAERS Safety Report 20902524 (Version 11)
Quarter: 2023Q2

REPORT INFORMATION
  Report Type: Report from Study
  Country: US (occurrence: US)
  Receive Date: 20220601
  Receipt Date: 20230413
  Transmission Date: 20230722
  Serious: Yes (Hospitalization, Other)
  Sender: FDA-Public Use
  Company Number: US-TAKEDA-2022TUS035024

PATIENT
  Sex: Female

DRUGS (3)
  1. MARIBAVIR [Suspect]
     Active Substance: MARIBAVIR
     Indication: Cytomegalovirus infection
     Dosage: 200 MILLIGRAM, BID
     Route: 048
     Dates: start: 20220326
  2. MARIBAVIR [Suspect]
     Active Substance: MARIBAVIR
     Dosage: 400 MILLIGRAM, BID
     Route: 048
     Dates: start: 20220326
  3. MARIBAVIR [Suspect]
     Active Substance: MARIBAVIR
     Dosage: 2 DOSAGE FORM, BID
     Route: 048

REACTIONS (11)
  - COVID-19 pneumonia [Recovered/Resolved]
  - Dizziness [Unknown]
  - Blood pressure increased [Unknown]
  - Fall [Unknown]
  - Blood pressure fluctuation [Unknown]
  - Discouragement [Unknown]
  - Blood pressure decreased [Unknown]
  - Product use issue [Unknown]
  - Product availability issue [Unknown]
  - Product distribution issue [Unknown]
  - Inappropriate schedule of product administration [Unknown]
